FAERS Safety Report 8769001 (Version 5)
Quarter: 2012Q4

REPORT INFORMATION
  Report Type: 
  Country: US (occurrence: US)
  Receive Date: 20120905
  Receipt Date: 20121115
  Transmission Date: 20130627
  Serious: Yes (Other)
  Sender: FDA-Public Use
  Company Number: US-ASTRAZENECA-2012SE65128

PATIENT
  Age: 55 Year
  Sex: Male

DRUGS (3)
  1. SEROQUEL XR [Suspect]
     Route: 048
  2. SEROQUEL XR [Suspect]
     Route: 048
  3. SEROQUEL XR [Suspect]
     Route: 048

REACTIONS (11)
  - Cardiac failure congestive [Unknown]
  - Myocardial infarction [Unknown]
  - Anxiety [Unknown]
  - Cardiac disorder [Unknown]
  - Bipolar I disorder [Unknown]
  - Insomnia [Unknown]
  - Malaise [Unknown]
  - Adverse event [Unknown]
  - Schizophrenia [Unknown]
  - Drug dose omission [Unknown]
  - Circumstance or information capable of leading to medication error [Unknown]
